FAERS Safety Report 6749403-0 (Version None)
Quarter: 2010Q2

REPORT INFORMATION
  Report Type: 
  Country: None (occurrence: None)
  Receive Date: 20100601
  Receipt Date: 20100524
  Transmission Date: 20101027
  Serious: Yes (Other)
  Sender: FDA-Public Use
  Company Number: US-ROCHE-705125

PATIENT
  Age: 71 Year
  Sex: Male

DRUGS (3)
  1. AVASTIN [Suspect]
     Dosage: 14 DOSES
     Route: 065
  2. KENALOG [Suspect]
     Dosage: SEVEN INJECTIONS
     Route: 031
  3. LUCENTIS [Concomitant]
     Dosage: 10 DOSES

REACTIONS (1)
  - ENDOPHTHALMITIS [None]
